FAERS Safety Report 16446547 (Version 2)
Quarter: 2019Q3

REPORT INFORMATION
  Report Type: Not Available
  Country: US (occurrence: US)
  Receive Date: 20190618
  Receipt Date: 20190725
  Transmission Date: 20191004
  Serious: Yes (Hospitalization)
  Sender: FDA-Public Use
  Company Number: US-NEUROCRINE BIOSCIENCES INC.-2019NBI01546

PATIENT
  Sex: Male

DRUGS (4)
  1. OLANZAPINE. [Concomitant]
     Active Substance: OLANZAPINE
     Dosage: 5 MG IN THE MORNING, 20 MG AT BEDTIME
  2. INGREZZA [Suspect]
     Active Substance: VALBENAZINE
     Indication: TARDIVE DYSKINESIA
     Route: 048
     Dates: start: 20190104, end: 2019
  3. FERROUS SULFATE. [Concomitant]
     Active Substance: FERROUS SULFATE
     Indication: ANAEMIA
  4. DOXEPIN [Concomitant]
     Active Substance: DOXEPIN
     Dosage: 1-2 TABLETS AT BEDTIME

REACTIONS (2)
  - Thirst [Unknown]
  - Water intoxication [Recovered/Resolved]

NARRATIVE: CASE EVENT DATE: 2019
